FAERS Safety Report 11235628 (Version 2)
Quarter: 2017Q4

REPORT INFORMATION
  Report Type: Spontaneous
  Country: FR (occurrence: FR)
  Receive Date: 20150702
  Receipt Date: 20171011
  Transmission Date: 20180320
  Serious: Yes (Hospitalization, Other)
  Sender: FDA-Public Use
  Company Number: FR-TEVA-573359ISR

PATIENT
  Age: 58 Year
  Sex: Female

DRUGS (7)
  1. ETOPOSIDE TEVA 5 [Suspect]
     Active Substance: ETOPOSIDE
     Dosage: 100 MG/M2 DAILY;
     Dates: start: 20150214, end: 20150217
  2. CYTARABINE SANDOZ [Suspect]
     Active Substance: CYTARABINE
     Dosage: 200 MG/M2 DAILY;
     Dates: start: 20150214, end: 20150217
  3. EMEND [Concomitant]
     Active Substance: APREPITANT
  4. ZOPHREN [Concomitant]
     Active Substance: ONDANSETRON
  5. LEVACT [Suspect]
     Active Substance: BENDAMUSTINE HYDROCHLORIDE
     Indication: PRODUCT USED FOR UNKNOWN INDICATION
     Dosage: 200 MG/M2 DAILY;
     Route: 042
     Dates: start: 20150212, end: 20150213
  6. ALKERAN [Suspect]
     Active Substance: MELPHALAN
     Dosage: 140 MG/M2 DAILY;
     Dates: start: 20150218, end: 20150218
  7. METHYLPREDNISOLONE MYLAN [Concomitant]
     Active Substance: METHYLPREDNISOLONE

REACTIONS (8)
  - Bone marrow failure [Recovered/Resolved]
  - Mucosal inflammation [Recovering/Resolving]
  - Acute kidney injury [Recovered/Resolved]
  - Enterococcal infection [Recovering/Resolving]
  - Pyrexia [Recovering/Resolving]
  - Pneumonia [Recovering/Resolving]
  - Hypernatraemia [Recovered/Resolved]
  - Diarrhoea [Recovering/Resolving]

NARRATIVE: CASE EVENT DATE: 20150221
